FAERS Safety Report 5029948-4 (Version None)
Quarter: 2006Q2

REPORT INFORMATION
  Report Type: 
  Country: None (occurrence: None)
  Receive Date: 20060614
  Receipt Date: 20060607
  Transmission Date: 20061013
  Serious: Yes (Other)
  Sender: FDA-Public Use
  Company Number: S06-USA-02233-01

PATIENT
  Sex: Female

DRUGS (4)
  1. THYROID TAB [Suspect]
     Indication: HYPOTHYROIDISM
     Dosage: 90 MG QD PO
     Route: 048
     Dates: start: 20040601, end: 20060604
  2. THYROID TAB [Suspect]
     Indication: HYPOTHYROIDISM
     Dosage: 120 MG QD PO
     Route: 048
     Dates: start: 20060605
  3. AVALIDE [Concomitant]
  4. TOPROL-XL [Concomitant]

REACTIONS (5)
  - BLOOD CHOLESTEROL INCREASED [None]
  - BLOOD PRESSURE INCREASED [None]
  - BLOOD THYROID STIMULATING HORMONE INCREASED [None]
  - DRUG EFFECT DECREASED [None]
  - THYROXINE ABNORMAL [None]
